FAERS Safety Report 17014298 (Version 6)
Quarter: 2019Q4

REPORT INFORMATION
  Report Type: Spontaneous
  Country: PL (occurrence: PL)
  Receive Date: 20191111
  Receipt Date: 20191225
  Transmission Date: 20200122
  Serious: Yes (Hospitalization, Other)
  Sender: FDA-Public Use
  Company Number: PL-JNJFOC-20191101439

PATIENT
  Age: 45 Year
  Sex: Female

DRUGS (12)
  1. PARACETAMOL [Suspect]
     Active Substance: ACETAMINOPHEN
     Indication: PAIN IN EXTREMITY
     Route: 065
  2. PARACETAMOL [Suspect]
     Active Substance: ACETAMINOPHEN
     Indication: ARTHRALGIA
  3. KETOPROFEN. [Suspect]
     Active Substance: KETOPROFEN
     Indication: PAIN IN EXTREMITY
  4. NPH INSULIN PORK [Concomitant]
     Indication: TYPE 1 DIABETES MELLITUS
     Dosage: INJECTED AT BEDTIME
     Route: 065
  5. FUROSEMIDE. [Suspect]
     Active Substance: FUROSEMIDE
     Indication: SWELLING
  6. INSULIN ASPART [Concomitant]
     Active Substance: INSULIN ASPART
     Indication: TYPE 1 DIABETES MELLITUS
     Dosage: PERMANENT DOSES
     Route: 065
  7. NIMESULIDE [Suspect]
     Active Substance: NIMESULIDE
     Indication: PAIN IN EXTREMITY
     Route: 065
  8. FUROSEMIDE. [Suspect]
     Active Substance: FUROSEMIDE
     Indication: OEDEMA PERIPHERAL
     Dosage: UP TO 4 TABLETS / DAY
     Route: 065
  9. INSULIN ISOPHANE BOVINE [Concomitant]
     Active Substance: INSULIN BEEF
     Indication: TYPE 1 DIABETES MELLITUS
     Route: 065
  10. KETOPROFEN. [Suspect]
     Active Substance: KETOPROFEN
     Indication: ARTHRALGIA
     Dosage: 50 MG, WHEN AS NEEDED, PROBABLY EVEN UPTO 6-8 TABLETS PER 24 HOURS; AS REQUIRED
     Route: 065
  11. LEVOTHYROXINE. [Concomitant]
     Active Substance: LEVOTHYROXINE
     Indication: HYPOTHYROIDISM
     Dosage: 150 UG, QD
     Route: 065
  12. NIMESULIDE [Suspect]
     Active Substance: NIMESULIDE
     Indication: ARTHRALGIA

REACTIONS (5)
  - Drug abuse [Recovered/Resolved]
  - Iron deficiency anaemia [Not Recovered/Not Resolved]
  - Intentional product misuse [Unknown]
  - Gastritis erosive [Recovered/Resolved]
  - Contraindicated product administered [Unknown]
